FAERS Safety Report 9401410 (Version 1)
Quarter: 2013Q3

REPORT INFORMATION
  Report Type: Spontaneous
  Country: US (occurrence: US)
  Receive Date: 20130715
  Receipt Date: 20130715
  Transmission Date: 20140515
  Serious: Yes (Other)
  Sender: FDA-Public Use
  Company Number: US-BAXTER-2013BAX026419

PATIENT
  Age: 67 Year
  Sex: Male

DRUGS (11)
  1. FEIBA NF [Suspect]
     Indication: HAEMORRHAGE
  2. FEIBA NF [Suspect]
     Indication: PROPHYLAXIS
  3. FEIBA NF [Suspect]
     Indication: OFF LABEL USE
  4. DANAZOL [Suspect]
     Indication: PRODUCT USED FOR UNKNOWN INDICATION
  5. DANAZOL [Suspect]
  6. THALIDOMIDE [Suspect]
     Indication: INTESTINAL HAEMORRHAGE
     Route: 048
  7. THALIDOMIDE [Suspect]
  8. FACTOR VIIA, RECOMBINANT [Concomitant]
     Indication: PRODUCT USED FOR UNKNOWN INDICATION
  9. AMINOCAPROIC ACID [Concomitant]
     Indication: PRODUCT USED FOR UNKNOWN INDICATION
  10. METHYLPREDNISOLONE [Concomitant]
     Indication: PRODUCT USED FOR UNKNOWN INDICATION
  11. PREDNISONE [Concomitant]
     Indication: PRODUCT USED FOR UNKNOWN INDICATION

REACTIONS (10)
  - Acute myocardial infarction [Unknown]
  - Gastrointestinal haemorrhage [Unknown]
  - Mitral valve incompetence [Unknown]
  - Drug ineffective [Not Recovered/Not Resolved]
  - Coronary artery disease [Unknown]
  - Haemorrhage [Unknown]
  - Anaemia [Unknown]
  - Angina pectoris [Unknown]
  - Mood swings [Unknown]
  - Constipation [Unknown]
